FAERS Safety Report 5094414-7 (Version None)
Quarter: 2006Q3

REPORT INFORMATION
  Report Type: 
  Country: None (occurrence: None)
  Receive Date: 20060830
  Receipt Date: 20060810
  Transmission Date: 20061208
  Serious: Yes (Congenital Anomaly)
  Sender: FDA-Public Use
  Company Number: GB200608001955

PATIENT
  Sex: 0

DRUGS (2)
  1. CYMBALTA [Suspect]
     Dosage: TRANSPLACENTAL
     Route: 064
  2. MIRTAZAPINE [Concomitant]

REACTIONS (2)
  - DRUG EXPOSURE DURING PREGNANCY [None]
  - LIMB MALFORMATION [None]
